FAERS Safety Report 7712070-3 (Version None)
Quarter: 2011Q3

REPORT INFORMATION
  Report Type: 
  Country: None (occurrence: None)
  Receive Date: 20110822
  Receipt Date: 20110811
  Transmission Date: 20111222
  Serious: Yes (Hospitalization)
  Sender: FDA-Public Use
  Company Number: WAES 1108USA01738

PATIENT
  Age: 49 Year
  Sex: Female

DRUGS (5)
  1. JANUVIA [Suspect]
     Indication: TYPE 2 DIABETES MELLITUS
     Dosage: PO
     Route: 048
     Dates: start: 20090204, end: 20100221
  2. TOPROL-XL [Concomitant]
  3. CLONIDINE HYDROCHLORIDE [Concomitant]
  4. DIOVAN HCT [Concomitant]
  5. HYDRALAZINE HCL [Concomitant]

REACTIONS (7)
  - RESPIRATORY FAILURE [None]
  - CARDIAC FAILURE CONGESTIVE [None]
  - CONDITION AGGRAVATED [None]
  - HYPERTENSION [None]
  - UNRESPONSIVE TO STIMULI [None]
  - BLOOD GLUCOSE INCREASED [None]
  - BLOOD CREATINE PHOSPHOKINASE INCREASED [None]
